FAERS Safety Report 5671045-9 (Version None)
Quarter: 2008Q1

REPORT INFORMATION
  Report Type: 
  Country: None (occurrence: None)
  Receive Date: 20080318
  Receipt Date: 20080317
  Transmission Date: 20080703
  Serious: Yes (Hospitalization)
  Sender: FDA-Public Use
  Company Number: FRWYE275507SEP07

PATIENT
  Sex: Male

DRUGS (1)
  1. ADVIL [Suspect]
     Dosage: UNKNOWN
     Route: 048
     Dates: start: 20070101, end: 20070101

REACTIONS (1)
  - CELLULITIS [None]
